FAERS Safety Report 8931304 (Version 1)
Quarter: 2012Q4

REPORT INFORMATION
  Report Type: 
  Country: US (occurrence: US)
  Receive Date: 20121128
  Receipt Date: 20121128
  Transmission Date: 20130627
  Serious: Yes (Other)
  Sender: FDA-Public Use
  Company Number: US-PFIZER INC-2012297192

PATIENT
  Age: 54 Year
  Sex: Female

DRUGS (3)
  1. XANAX [Suspect]
     Indication: DEPRESSION
     Dosage: UNK
  2. XANAX [Suspect]
     Indication: AGITATION
  3. COPAXONE [Suspect]
     Indication: MULTIPLE SCLEROSIS
     Dosage: 20 mg, UNK
     Dates: start: 20110501

REACTIONS (3)
  - Overdose [Unknown]
  - Off label use [Unknown]
  - Multiple sclerosis relapse [Recovered/Resolved]
